FAERS Safety Report 24004444 (Version 2)
Quarter: 2024Q3

REPORT INFORMATION
  Report Type: Report from Study
  Country: FR (occurrence: FR)
  Receive Date: 20240624
  Receipt Date: 20240710
  Transmission Date: 20241017
  Serious: Yes (Hospitalization, Other)
  Sender: EXELIXIS
  Company Number: FR-IPSEN Group, Research and Development-2024-11923

PATIENT
  Age: 72 Year
  Sex: Female
  Weight: 62 kg

DRUGS (10)
  1. CABOZANTINIB [Suspect]
     Active Substance: CABOZANTINIB
     Indication: Renal cell carcinoma
     Dosage: 40 MG, QD
     Route: 048
     Dates: start: 20240201, end: 20240228
  2. CABOZANTINIB [Suspect]
     Active Substance: CABOZANTINIB
     Dosage: 30 MG, QD
     Route: 048
     Dates: start: 20240307, end: 20240412
  3. CABOZANTINIB [Suspect]
     Active Substance: CABOZANTINIB
     Dosage: 20 MG, QD
     Route: 048
     Dates: start: 20240428, end: 20240611
  4. NIVOLUMAB [Suspect]
     Active Substance: NIVOLUMAB
     Indication: Renal cell carcinoma
     Dosage: ONCE
     Route: 042
     Dates: start: 20240201
  5. NIVOLUMAB [Suspect]
     Active Substance: NIVOLUMAB
     Dosage: ONCE
     Route: 042
     Dates: start: 20240228
  6. NIVOLUMAB [Suspect]
     Active Substance: NIVOLUMAB
     Dosage: ONCE
     Route: 042
     Dates: start: 20240327
  7. NIVOLUMAB [Suspect]
     Active Substance: NIVOLUMAB
     Dosage: ONCE
     Route: 042
     Dates: start: 20240424
  8. NIVOLUMAB [Suspect]
     Active Substance: NIVOLUMAB
     Dosage: ONCE
     Route: 042
     Dates: start: 20240522
  9. DOXYCYCLINE [Concomitant]
     Active Substance: DOXYCYCLINE\DOXYCYCLINE HYCLATE
     Indication: Prophylaxis
     Dates: start: 20240616, end: 20240624
  10. VALACYCLOVIR HYDROCHLORIDE [Concomitant]
     Active Substance: VALACYCLOVIR HYDROCHLORIDE
     Indication: Prophylaxis
     Dates: start: 20240616, end: 20240626

REACTIONS (7)
  - Ulcerative keratitis [Not Recovered/Not Resolved]
  - Hypothyroidism [Not Recovered/Not Resolved]
  - Ageusia [Not Recovered/Not Resolved]
  - Asthenia [Not Recovered/Not Resolved]
  - Nausea [Recovered/Resolved]
  - Hypertension [Not Recovered/Not Resolved]
  - Stomatitis [Not Recovered/Not Resolved]

NARRATIVE: CASE EVENT DATE: 20240227
